FAERS Safety Report 11867173 (Version 4)
Quarter: 2017Q4

REPORT INFORMATION
  Report Type: Report from Study
  Country: AR (occurrence: AR)
  Receive Date: 20151224
  Receipt Date: 20171205
  Transmission Date: 20180320
  Serious: Yes (Other)
  Sender: FDA-Public Use
  Company Number: PHHY2015AR165255

PATIENT
  Sex: Female

DRUGS (5)
  1. PROLIA [Concomitant]
     Active Substance: DENOSUMAB
     Indication: OSTEOPOROSIS
     Dosage: UNK
     Route: 065
  2. GILENYA [Suspect]
     Active Substance: FINGOLIMOD HYDROCHLORIDE
     Indication: MULTIPLE SCLEROSIS
     Dosage: 0.5 MG, QD
     Route: 065
     Dates: start: 201307
  3. NICOTINELL [Suspect]
     Active Substance: NICOTINE
     Indication: PRODUCT USED FOR UNKNOWN INDICATION
     Dosage: 1 MG, UNK
     Route: 065
  4. PLENICA [Suspect]
     Active Substance: PREGABALIN
     Indication: FEAR
     Dosage: 75 OT, UNK
     Route: 065
     Dates: start: 201709
  5. ALPLAX [Concomitant]
     Indication: PRODUCT USED FOR UNKNOWN INDICATION
     Dosage: UNK
     Route: 065

REACTIONS (10)
  - Anxiety [Not Recovered/Not Resolved]
  - Panic attack [Unknown]
  - Angiopathy [Not Recovered/Not Resolved]
  - Visual impairment [Not Recovered/Not Resolved]
  - Asthenia [Not Recovered/Not Resolved]
  - Aortic arteriosclerosis [Unknown]
  - Temperature intolerance [Unknown]
  - Depression [Not Recovered/Not Resolved]
  - Fear [Not Recovered/Not Resolved]
  - Pain in extremity [Not Recovered/Not Resolved]
